FAERS Safety Report 5943044-0 (Version None)
Quarter: 2008Q4

REPORT INFORMATION
  Report Type: 
  Country: None (occurrence: None)
  Receive Date: 20081106
  Receipt Date: 20080916
  Transmission Date: 20090506
  Serious: Yes (Death, Hospitalization)
  Sender: FDA-Public Use
  Company Number: JP-AVENTIS-200812914JP

PATIENT
  Age: 70 Year
  Sex: Female

DRUGS (4)
  1. RILUTEK [Suspect]
     Indication: AMYOTROPHIC LATERAL SCLEROSIS
     Route: 048
     Dates: start: 20060405, end: 20060804
  2. PLETAL [Concomitant]
     Indication: EATING DISORDER
     Route: 048
     Dates: start: 20060405, end: 20060804
  3. METHYCOBAL                         /00056201/ [Concomitant]
     Indication: EATING DISORDER
     Route: 048
     Dates: start: 20060405, end: 20060804
  4. MAGNESIUM OXIDE [Concomitant]
     Indication: EATING DISORDER
     Route: 048
     Dates: start: 20060405, end: 20060804

REACTIONS (3)
  - CONDITION AGGRAVATED [None]
  - DISEASE PROGRESSION [None]
  - PNEUMONIA ASPIRATION [None]
